FAERS Safety Report 4443005-7 (Version None)
Quarter: 2004Q3

REPORT INFORMATION
  Report Type: 
  Country: None (occurrence: None)
  Receive Date: 20040907
  Receipt Date: 20040812
  Transmission Date: 20050211
  Serious: Yes (Hospitalization, Other)
  Sender: FDA-Public Use
  Company Number: A-US2002-00840

PATIENT
  Age: 59 Year
  Sex: Female
  Weight: 121.6 kg

DRUGS (11)
  1. TRACLEER [Suspect]
     Indication: PULMONARY HYPERTENSION
     Dosage: SEE IMAGE
     Route: 048
     Dates: start: 20020819, end: 20020221
  2. LASIX [Concomitant]
  3. PAXIL CR [Concomitant]
  4. VALUREN (CARBROMAL, BROMISOVAL) [Concomitant]
  5. SYNTHROID [Concomitant]
  6. PROTONIX [Concomitant]
  7. LEUCOVORIN (FOLINIC SECOND) [Concomitant]
  8. NASACORT [Concomitant]
  9. PRINIVIL [Concomitant]
  10. ALLEGRA-D (PSEUDOEPHEDRINE HYDROCHLORIDE, FEXOFENADINE HYDROCHLORIDE) [Concomitant]
  11. ASPIRIN [Concomitant]

REACTIONS (3)
  - AUTOIMMUNE HEPATITIS [None]
  - DRUG INEFFECTIVE [None]
  - HEADACHE [None]
